FAERS Safety Report 5584464-6 (Version None)
Quarter: 2008Q1

REPORT INFORMATION
  Report Type: 
  Country: None (occurrence: None)
  Receive Date: 20080108
  Receipt Date: 20071228
  Transmission Date: 20080703
  Serious: Yes (Other)
  Sender: FDA-Public Use
  Company Number: US-ELI_LILLY_AND_COMPANY-US200801000080

PATIENT
  Sex: Female

DRUGS (3)
  1. FORTEO [Suspect]
  2. FOSAMAX [Concomitant]
  3. BONIVA [Concomitant]

REACTIONS (1)
  - HAEMORRHAGE [None]
